FAERS Safety Report 8722013 (Version 2)
Quarter: 2012Q4

REPORT INFORMATION
  Report Type: 
  Country: US (occurrence: US)
  Receive Date: 20120814
  Receipt Date: 20121210
  Transmission Date: 20130627
  Serious: Yes (Other)
  Sender: FDA-Public Use
  Company Number: US-BAYER-2012-080761

PATIENT
  Age: 33 Year
  Sex: Female
  Weight: 81.63 kg

DRUGS (9)
  1. YAZ [Suspect]
     Indication: CONTRACEPTION
     Dosage: UNK
     Dates: start: 200711, end: 200809
  2. OCELLA [Suspect]
     Indication: CONTRACEPTION
     Dosage: UNK
     Dates: start: 200810, end: 201103
  3. VITAMIN C [Concomitant]
  4. IBUPROFEN [Concomitant]
  5. DICYCLOMINE [Concomitant]
     Dosage: UNK
     Dates: start: 2010, end: 2011
  6. TYLENOL [Concomitant]
     Indication: PAIN
  7. EXCEDRIN ASPIRIN FREE [Concomitant]
     Indication: PAIN
  8. CLEOCIN [Concomitant]
  9. CHANTIX [Concomitant]

REACTIONS (5)
  - Cholelithiasis [None]
  - Injury [None]
  - Pain [None]
  - Fear of disease [None]
  - Pain [None]
